FAERS Safety Report 6264483-7 (Version None)
Quarter: 2009Q3

REPORT INFORMATION
  Report Type: 
  Country: None (occurrence: None)
  Receive Date: 20090708
  Receipt Date: 20090708
  Transmission Date: 20100115
  Serious: Yes (Hospitalization, Other)
  Sender: FDA-Public Use
  Company Number: None

PATIENT
  Sex: Female
  Weight: 81.6475 kg

DRUGS (2)
  1. CYMBALTA [Suspect]
     Indication: FIBROMYALGIA
     Dosage: @ 6 GRAINS (PELLETS) 1 X A.M. YOGURT
  2. CYMBALTA [Suspect]
     Indication: PANIC DISORDER
     Dosage: @ 6 GRAINS (PELLETS) 1 X A.M. YOGURT

REACTIONS (8)
  - DIZZINESS [None]
  - FATIGUE [None]
  - HEADACHE [None]
  - INSOMNIA [None]
  - LOSS OF CONSCIOUSNESS [None]
  - RASH [None]
  - RESPIRATORY DISORDER [None]
  - SYNCOPE [None]
